FAERS Safety Report 7506419-4 (Version None)
Quarter: 2011Q2

REPORT INFORMATION
  Report Type: 
  Country: None (occurrence: None)
  Receive Date: 20110526
  Receipt Date: 20110524
  Transmission Date: 20111010
  Serious: Yes (Other)
  Sender: FDA-Public Use
  Company Number: US-PFIZER INC-2011112181

PATIENT
  Sex: Female

DRUGS (1)
  1. LYRICA [Suspect]
     Dosage: UNK
     Route: 048
     Dates: start: 20110520, end: 20110521

REACTIONS (5)
  - VISION BLURRED [None]
  - ANXIETY [None]
  - PANIC REACTION [None]
  - DIZZINESS [None]
  - SOMNOLENCE [None]
